FAERS Safety Report 15739399 (Version 2)
Quarter: 2019Q2

REPORT INFORMATION
  Report Type: Spontaneous
  Country: US (occurrence: US)
  Receive Date: 20181219
  Receipt Date: 20190603
  Transmission Date: 20190711
  Serious: Yes (Hospitalization)
  Sender: FDA-Public Use
  Company Number: US-PFIZER INC-2018516489

PATIENT
  Age: 44 Year
  Sex: Female

DRUGS (6)
  1. METFORMIN [Concomitant]
     Active Substance: METFORMIN HYDROCHLORIDE
     Indication: DIABETES MELLITUS
     Dosage: 1000 MG, 2X/DAY (1000 MG IN MORNING AND AT NIGHT )
  2. TRAMADOL. [Concomitant]
     Active Substance: TRAMADOL
     Indication: ARTHRITIS
     Dosage: 1 DF, 2X/DAY, (TWICE A DAY,ONE IN MORNING AND ONE NIGHT PIL)
  3. LYRICA [Suspect]
     Active Substance: PREGABALIN
     Indication: PAIN
     Dosage: 300 MG, 2X/DAY, (TAKE 2 CAPSULE 2 TIMES PER DAY)
     Route: 048
  4. LEVEMIR [Concomitant]
     Active Substance: INSULIN DETEMIR
     Indication: DIABETES MELLITUS
     Dosage: 55 IU, 1X/DAY (55 UNITS ONCE A DAY INJECTION )
  5. LYRICA [Suspect]
     Active Substance: PREGABALIN
     Indication: DIABETIC NEUROPATHY
     Dosage: 300 MG, 2X/DAY, (2 IN THE MORNING AND 2 AT NIGHT)
     Route: 048
  6. LEVEMIR [Concomitant]
     Active Substance: INSULIN DETEMIR
     Dosage: 70 IU, UNK

REACTIONS (4)
  - Memory impairment [Unknown]
  - Vision blurred [Unknown]
  - Weight fluctuation [Unknown]
  - Cholelithiasis [Unknown]

NARRATIVE: CASE EVENT DATE: 201812
